FAERS Safety Report 6575052-3 (Version None)
Quarter: 2010Q1

REPORT INFORMATION
  Report Type: 
  Country: None (occurrence: None)
  Receive Date: 20100209
  Receipt Date: 20100201
  Transmission Date: 20100710
  Serious: Yes (Hospitalization)
  Sender: FDA-Public Use
  Company Number: NZ-ASTRAZENECA-2010SE04533

PATIENT
  Age: 967 Month
  Sex: Female

DRUGS (5)
  1. OMEPRAZOLE [Suspect]
     Indication: GASTROOESOPHAGEAL REFLUX DISEASE
     Route: 048
     Dates: start: 20020101, end: 20060207
  2. FELODIPINE [Concomitant]
     Indication: HYPERTENSION
     Route: 048
     Dates: start: 19930101
  3. DIPYRIDAMOLE [Concomitant]
     Route: 048
     Dates: start: 19990101
  4. ACETYLSALICYLIC ACID [Concomitant]
     Route: 048
     Dates: start: 19990101
  5. LEVOTHYROXINE SODIUM [Concomitant]
     Indication: HYPERTHYROIDISM
     Dosage: 50 RG DAILY
     Route: 048
     Dates: start: 19990101

REACTIONS (3)
  - ATAXIA [None]
  - NYSTAGMUS [None]
  - VERTIGO [None]
